FAERS Safety Report 10224086 (Version 2)
Quarter: 2014Q2

REPORT INFORMATION
  Report Type: Spontaneous
  Country: US (occurrence: AU)
  Receive Date: 20140609
  Receipt Date: 20140609
  Transmission Date: 20141212
  Serious: Yes (Other)
  Sender: FDA-Public Use
  Company Number: AU-FRI-1000065887

PATIENT
  Age: 18 Year
  Sex: Female

DRUGS (4)
  1. SAPHRIS [Suspect]
     Indication: BORDERLINE PERSONALITY DISORDER
     Route: 060
  2. SAPHRIS [Suspect]
     Indication: BIPOLAR I DISORDER
  3. SAPHRIS [Suspect]
     Indication: BORDERLINE PERSONALITY DISORDER
     Dosage: 10 MG
     Route: 060
  4. SAPHRIS [Suspect]
     Indication: BIPOLAR I DISORDER

REACTIONS (3)
  - Swollen tongue [Recovered/Resolved]
  - Underdose [Recovered/Resolved]
  - Inappropriate schedule of drug administration [Recovered/Resolved]
